FAERS Safety Report 23160246 (Version 1)
Quarter: 2023Q4

REPORT INFORMATION
  Report Type: Report from Study
  Country: EG (occurrence: EG)
  Receive Date: 20231108
  Receipt Date: 20231108
  Transmission Date: 20240110
  Serious: Yes (Life-Threatening, Disabling)
  Sender: FDA-Public Use
  Company Number: EG-002147023-NVSC2023EG228141

PATIENT
  Age: 51 Year
  Sex: Female

DRUGS (7)
  1. XOLAIR [Suspect]
     Active Substance: OMALIZUMAB
     Indication: Urticaria
     Dosage: 300 MG, QMO (2 VIALS OF 150 MG)
     Route: 058
     Dates: start: 20231008
  2. XOLAIR [Suspect]
     Active Substance: OMALIZUMAB
     Dosage: 300 MG, BIW (2 VIALS OF 150 MG)
     Route: 058
  3. CYCLOSPORINE [Suspect]
     Active Substance: CYCLOSPORINE
     Indication: Urticaria
     Dosage: 1 DOSAGE FORM, BID
     Route: 048
     Dates: start: 20231024
  4. CYCLOSPORINE [Suspect]
     Active Substance: CYCLOSPORINE
     Dosage: 1 DOSAGE FORM, Q8H
     Route: 048
     Dates: end: 20231029
  5. EBASTINE [Concomitant]
     Active Substance: EBASTINE
     Indication: Hypovitaminosis
     Dosage: UNK, 2 TABS TWICE DAILY THEN 1 TAB EVERY 6 HRS
     Route: 048
     Dates: start: 202302
  6. SINGULAIR [Concomitant]
     Active Substance: MONTELUKAST SODIUM
     Indication: Urticaria
     Dosage: 1 DOSAGE FORM, QD
     Route: 048
     Dates: start: 202302
  7. SOLUPRED [Concomitant]
     Indication: Urticaria
     Dosage: 2 DOSAGE FORM, BID, STOPPED AT OCT 2023 THEN RETAKING IT  BETWEENN THE FIRST AND SECOND DOSE OF XOLA
     Route: 048
     Dates: start: 202302

REACTIONS (15)
  - Urticaria [Recovering/Resolving]
  - Insomnia [Recovering/Resolving]
  - Agitation [Recovering/Resolving]
  - Burning sensation [Recovering/Resolving]
  - Joint swelling [Recovering/Resolving]
  - Peripheral swelling [Recovering/Resolving]
  - Erythema [Recovering/Resolving]
  - Pruritus [Recovering/Resolving]
  - Renal pain [Recovering/Resolving]
  - Nausea [Recovering/Resolving]
  - Fatigue [Recovering/Resolving]
  - Headache [Recovering/Resolving]
  - Dizziness [Recovering/Resolving]
  - Product prescribing error [Unknown]
  - Drug ineffective [Not Recovered/Not Resolved]

NARRATIVE: CASE EVENT DATE: 20231011
